FAERS Safety Report 5713798-7 (Version None)
Quarter: 2008Q2

REPORT INFORMATION
  Report Type: 
  Country: None (occurrence: None)
  Receive Date: 20080421
  Receipt Date: 20080404
  Transmission Date: 20081010
  Serious: No
  Sender: FDA-Public Use
  Company Number: 002#2#2008-00239

PATIENT
  Age: 75 Year
  Sex: Female
  Weight: 82 kg

DRUGS (6)
  1. NEUPRO [Suspect]
     Indication: PARKINSON'S DISEASE
     Dosage: 2MG/24H, 1 IN 1 D, TRANSDERMAL, 4MG/24H, 1 IN 1 D, TRANSDERMAL, 6MG/24H, 1 IN 1 D, TRANSDERMAL
     Route: 062
     Dates: start: 20071201, end: 20080405
  2. NEUPRO [Suspect]
     Indication: PARKINSON'S DISEASE
     Dosage: 2MG/24H, 1 IN 1 D, TRANSDERMAL, 4MG/24H, 1 IN 1 D, TRANSDERMAL, 6MG/24H, 1 IN 1 D, TRANSDERMAL
     Route: 062
     Dates: start: 20071001
  3. NEUPRO [Suspect]
     Indication: PARKINSON'S DISEASE
     Dosage: 2MG/24H, 1 IN 1 D, TRANSDERMAL, 4MG/24H, 1 IN 1 D, TRANSDERMAL, 6MG/24H, 1 IN 1 D, TRANSDERMAL
     Route: 062
     Dates: start: 20071201
  4. ATENOLOL [Concomitant]
  5. PRAVASTATIN [Concomitant]
  6. LEVOXYL [Concomitant]

REACTIONS (7)
  - APPLICATION SITE ERYTHEMA [None]
  - APPLICATION SITE PRURITUS [None]
  - APPLICATION SITE SWELLING [None]
  - MALAISE [None]
  - MOTOR DYSFUNCTION [None]
  - NAUSEA [None]
  - VOMITING [None]
